FAERS Safety Report 20674350 (Version 1)
Quarter: 2022Q2

REPORT INFORMATION
  Report Type: Spontaneous
  Country: FR (occurrence: FR)
  Receive Date: 20220405
  Receipt Date: 20220405
  Transmission Date: 20220721
  Serious: Yes (Hospitalization)
  Sender: FDA-Public Use
  Company Number: None

PATIENT
  Age: 81 Year
  Sex: Male

DRUGS (4)
  1. PAROXETINE HYDROCHLORIDE [Suspect]
     Active Substance: PAROXETINE HYDROCHLORIDE
     Indication: Depression
     Dosage: LONG COURSE, PAROXETINE (CHLORHYDRATE DE) ANHYDRE, UNIT DOSE: 20 MG, FREQUENCY TIME 1 DAY
     Route: 048
     Dates: end: 20210911
  2. CLOPIDOGREL HYDROCHLORIDE [Suspect]
     Active Substance: CLOPIDOGREL HYDROCHLORIDE
     Indication: Peripheral arterial occlusive disease
     Dosage: LONG COURSE, CLOPIDOGREL (CHLORHYDRATE DE), UNIT DOSE: 75 MG, FREQUENCY TIME 1 DAY
     Route: 048
     Dates: end: 20210911
  3. CRESTOR [Suspect]
     Active Substance: ROSUVASTATIN CALCIUM
     Indication: Myocardial ischaemia
     Dosage: LONG COURSE, UNIT DOSE: 5 MG, FREQUENCY TIME 1 DAY
     Route: 048
     Dates: end: 20210911
  4. WARFARIN SODIUM [Suspect]
     Active Substance: WARFARIN SODIUM
     Indication: Atrial fibrillation
     Dosage: LONG COURSE, UNIT DOSE: 2 MG, FREQUENCY TIME1 DAY
     Route: 048
     Dates: end: 20210911

REACTIONS (1)
  - Subcutaneous haematoma [Not Recovered/Not Resolved]

NARRATIVE: CASE EVENT DATE: 20210824
